FAERS Safety Report 5502573-4 (Version None)
Quarter: 2007Q4

REPORT INFORMATION
  Report Type: 
  Country: None (occurrence: None)
  Receive Date: 20071031
  Receipt Date: 20071023
  Transmission Date: 20080405
  Serious: Yes (Other)
  Sender: FDA-Public Use
  Company Number: PHBS2006BE19475

PATIENT
  Sex: Male
  Weight: 64 kg

DRUGS (9)
  1. ZOMETA [Suspect]
     Indication: MULTIPLE MYELOMA
     Dosage: 4MG, EVERY 6 MONTHS
     Dates: start: 20040607, end: 20070118
  2. MS CONTIN [Concomitant]
  3. ALPRAZOLAM [Concomitant]
  4. MOBIC [Concomitant]
  5. RANITIDINE [Concomitant]
  6. SIPRALEXA [Concomitant]
  7. UNITRANXENE [Concomitant]
  8. ULTRA-MG [Concomitant]
  9. BEFACT FORTE [Concomitant]

REACTIONS (1)
  - OSTEONECROSIS [None]
